FAERS Safety Report 8126417-X (Version None)
Quarter: 2012Q1

REPORT INFORMATION
  Report Type: 
  Country: None (occurrence: None)
  Receive Date: 20120209
  Receipt Date: 20120208
  Transmission Date: 20120608
  Serious: No
  Sender: FDA-Public Use
  Company Number: US-PFIZER INC-2012034912

PATIENT
  Sex: Female
  Weight: 70.295 kg

DRUGS (1)
  1. ADVIL CONGESTION RELIEF [Suspect]
     Indication: SWELLING
     Dosage: UNK
     Dates: start: 20120207

REACTIONS (1)
  - NASAL CONGESTION [None]
